FAERS Safety Report 9244943 (Version 1)
Quarter: 2013Q1

REPORT INFORMATION
  Report Type: Spontaneous
  Country: US (occurrence: None)
  Receive Date: 20121130
  Receipt Date: 20121130
  Transmission Date: 20140127
  Serious: Yes (Hospitalization, Other)
  Sender: FDA-Public Use
  Company Number: US201209004036

PATIENT
  Age: 57 Year
  Sex: Male
  Weight: 83.9 kg

DRUGS (5)
  1. BYETTA [Suspect]
     Indication: TYPE 2 DIABETES MELLITUS
     Route: 058
     Dates: start: 201205
  2. GLIMEPIRIDE (GLIMEPIRIDE) [Suspect]
  3. METFORMIN (METFORMIN) [Suspect]
  4. ASPIRIN (ACETYLSALICYLIC ACID) [Suspect]
  5. LISINOPRIL (LISINOPRIL) [Suspect]

REACTIONS (1)
  - Pancreatitis [None]
